FAERS Safety Report 10330686 (Version 1)
Quarter: 2014Q3

REPORT INFORMATION
  Report Type: Spontaneous
  Country: GB (occurrence: None)
  Receive Date: 20140717
  Receipt Date: 20140717
  Transmission Date: 20150326
  Serious: Yes (Disabling, Other)
  Sender: FDA-Public Use
  Company Number: 228739

PATIENT
  Age: 84 Year
  Sex: Male
  Weight: 75 kg

DRUGS (1)
  1. PICATO [Suspect]
     Active Substance: INGENOL MEBUTATE
     Indication: ACTINIC KERATOSIS
     Route: 061
     Dates: start: 20140617, end: 20140620

REACTIONS (6)
  - Infection [None]
  - Application site vesicles [None]
  - Application site erythema [None]
  - Application site cellulitis [None]
  - Application site exfoliation [None]
  - Application site urticaria [None]
